FAERS Safety Report 19012779 (Version 2)
Quarter: 2021Q1

REPORT INFORMATION
  Report Type: Report from Study
  Country: US (occurrence: US)
  Receive Date: 20210315
  Receipt Date: 20210326
  Transmission Date: 20210420
  Serious: Yes (Hospitalization, Other)
  Sender: FDA-Public Use
  Company Number: US-JNJFOC-20210230092

PATIENT
  Age: 73 Year
  Sex: Female
  Weight: 71.28 kg

DRUGS (6)
  1. TYVASO [Concomitant]
     Active Substance: TREPROSTINIL
  2. ADEMPAS [Concomitant]
     Active Substance: RIOCIGUAT
  3. SELEXIPAG [Suspect]
     Active Substance: SELEXIPAG
     Route: 065
     Dates: start: 202102
  4. SELEXIPAG [Suspect]
     Active Substance: SELEXIPAG
     Indication: PULMONARY ARTERIAL HYPERTENSION
     Route: 065
     Dates: start: 20210128
  5. SELEXIPAG [Suspect]
     Active Substance: SELEXIPAG
     Route: 065
     Dates: start: 20210128, end: 202102
  6. TRACLEER [Concomitant]
     Active Substance: BOSENTAN

REACTIONS (7)
  - Ankle fracture [Recovering/Resolving]
  - Anaemia [Not Recovered/Not Resolved]
  - Gastrointestinal haemorrhage [Unknown]
  - Haemorrhage [Unknown]
  - Blood disorder [Unknown]
  - Syncope [Recovering/Resolving]
  - Fall [Unknown]

NARRATIVE: CASE EVENT DATE: 20210215
